FAERS Safety Report 9580188 (Version 2)
Quarter: 2013Q4

REPORT INFORMATION
  Report Type: Spontaneous
  Country: GB (occurrence: None)
  Receive Date: 20130930
  Receipt Date: 20131016
  Transmission Date: 20140711
  Serious: Yes (Other)
  Sender: FDA-Public Use
  Company Number: AUR-APL-2013-07806

PATIENT
  Age: 59 Year
  Sex: Male

DRUGS (3)
  1. RIBAVIRIN [Suspect]
     Indication: HEPATITIS C
     Route: 048
     Dates: start: 20121025
  2. INTERFERON ALFA-2B [Suspect]
     Indication: HEPATITIS C
     Route: 058
     Dates: start: 20121025
  3. TELAPREVIR [Suspect]
     Indication: HEPATITIS C
     Dosage: 2250 MG ( 750 MG, 3 IN 1 D), UNKNOWN
     Dates: start: 20121025, end: 20130117

REACTIONS (11)
  - Local swelling [None]
  - Pruritus generalised [None]
  - Lethargy [None]
  - Rash [None]
  - Insomnia [None]
  - Fatigue [None]
  - Swelling face [None]
  - Malaise [None]
  - Nausea [None]
  - Rash pruritic [None]
  - Depression [None]
